FAERS Safety Report 12295983 (Version 1)
Quarter: 2016Q2

REPORT INFORMATION
  Report Type: Spontaneous
  Country: US (occurrence: US)
  Receive Date: 20160422
  Receipt Date: 20160422
  Transmission Date: 20160815
  Serious: Yes (Death, Hospitalization, Other)
  Sender: FDA-Public Use
  Company Number: US-PURDUE PHARMA-USA-2016-0128608

PATIENT
  Age: 27 Year
  Sex: Female

DRUGS (3)
  1. XANAX [Suspect]
     Active Substance: ALPRAZOLAM
     Indication: ANXIETY
     Route: 065
  2. OXYCONTIN [Suspect]
     Active Substance: OXYCODONE HYDROCHLORIDE
     Indication: DRUG ABUSE
     Route: 048
  3. HEROIN [Suspect]
     Active Substance: DIACETYLMORPHINE
     Indication: DRUG ABUSE
     Route: 065

REACTIONS (10)
  - Overdose [Fatal]
  - Loss of consciousness [Unknown]
  - Maternal exposure during pregnancy [Unknown]
  - Hypokinesia [Unknown]
  - Suicide attempt [Unknown]
  - Therapeutic response unexpected [Unknown]
  - Euphoric mood [Unknown]
  - Miosis [Unknown]
  - Dependence [Unknown]
  - Substance abuse [Unknown]

NARRATIVE: CASE EVENT DATE: 2014
